FAERS Safety Report 6712512-6 (Version None)
Quarter: 2010Q2

REPORT INFORMATION
  Report Type: 
  Country: None (occurrence: None)
  Receive Date: 20100506
  Receipt Date: 20100426
  Transmission Date: 20101027
  Serious: Yes (Other)
  Sender: FDA-Public Use
  Company Number: US-JNJFOC-20100407090

PATIENT
  Sex: Female
  Weight: 82.56 kg

DRUGS (4)
  1. REMICADE [Suspect]
     Indication: RHEUMATOID ARTHRITIS
     Route: 042
  2. REMICADE [Suspect]
     Route: 042
  3. REMICADE [Suspect]
     Route: 042
  4. NEURONTIN [Concomitant]

REACTIONS (3)
  - DRUG INEFFECTIVE [None]
  - FIBROMYALGIA [None]
  - OSTEOARTHRITIS [None]
